FAERS Safety Report 19057499 (Version 1)
Quarter: 2021Q1

REPORT INFORMATION
  Report Type: Spontaneous
  Country: US (occurrence: US)
  Receive Date: 20210325
  Receipt Date: 20210325
  Transmission Date: 20210420
  Serious: Yes (Life-Threatening, Hospitalization)
  Sender: FDA-Public Use
  Company Number: None

PATIENT
  Age: 80 Year
  Sex: Female
  Weight: 60 kg

DRUGS (1)
  1. AMPHOTERICIN?B LIPID COMPLEX [Suspect]
     Active Substance: AMPHOTERICIN B
     Indication: PNEUMONIA FUNGAL
     Route: 041

REACTIONS (4)
  - Infusion related reaction [None]
  - Acute respiratory failure [None]
  - Respiratory distress [None]
  - Chills [None]

NARRATIVE: CASE EVENT DATE: 20200214
